FAERS Safety Report 6150021-6 (Version None)
Quarter: 2009Q2

REPORT INFORMATION
  Report Type: 
  Country: None (occurrence: None)
  Receive Date: 20090409
  Receipt Date: 20090403
  Transmission Date: 20091009
  Serious: Yes (Other)
  Sender: FDA-Public Use
  Company Number: B0568518A

PATIENT
  Age: 67 Year
  Sex: Female
  Weight: 53 kg

DRUGS (4)
  1. CLENIL MODULITE [Suspect]
     Indication: ASTHMA
     Route: 055
     Dates: start: 20090301, end: 20090301
  2. OMEPRAZOLE [Concomitant]
     Route: 048
  3. PREDNISOLONE [Concomitant]
     Route: 048
  4. CLARITHROMYCIN [Concomitant]
     Route: 048

REACTIONS (2)
  - OROPHARYNGEAL PAIN [None]
  - RASH [None]
